FAERS Safety Report 6123345-6 (Version None)
Quarter: 2009Q1

REPORT INFORMATION
  Report Type: 
  Country: None (occurrence: None)
  Receive Date: 20090318
  Receipt Date: 20090312
  Transmission Date: 20090719
  Serious: Yes (Hospitalization)
  Sender: FDA-Public Use
  Company Number: US-ELI_LILLY_AND_COMPANY-US200903003103

PATIENT
  Sex: Female
  Weight: 138.32 kg

DRUGS (6)
  1. BYETTA [Suspect]
     Indication: TYPE 2 DIABETES MELLITUS
     Dosage: 5 UG, 2/D
     Route: 058
     Dates: start: 20070101, end: 20070101
  2. BYETTA [Suspect]
     Dosage: 10 UG, 2/D
     Route: 058
     Dates: start: 20070101
  3. BYETTA [Suspect]
     Dosage: 10 UG, DAILY (1/D)
     Route: 058
     Dates: start: 20070101
  4. METFORMIN HCL [Concomitant]
     Indication: TYPE 2 DIABETES MELLITUS
     Dosage: UNK, UNKNOWN
     Dates: end: 20080101
  5. ZOCOR [Concomitant]
     Dosage: UNK, UNKNOWN
  6. FLECAINIDE ACETATE [Concomitant]
     Dosage: 150 MG, 2/D

REACTIONS (5)
  - CARDIAC FIBRILLATION [None]
  - MOBILITY DECREASED [None]
  - MYALGIA [None]
  - PALPITATIONS [None]
  - WALKING AID USER [None]
